FAERS Safety Report 7424005-1 (Version None)
Quarter: 2011Q2

REPORT INFORMATION
  Report Type: 
  Country: None (occurrence: None)
  Receive Date: 20110419
  Receipt Date: 20110413
  Transmission Date: 20111010
  Serious: Yes (Disabling)
  Sender: FDA-Public Use
  Company Number: B0707074A

PATIENT
  Age: 64 Year
  Sex: Female

DRUGS (3)
  1. ANTI-HYPERCHOLESTEROLAEMIC [Concomitant]
  2. SUMATRIPTAN SUCCINATE [Suspect]
     Indication: MIGRAINE
     Dosage: 5TAB PER DAY
     Route: 065
  3. ASTHMA MEDICATION [Concomitant]

REACTIONS (3)
  - CEREBROVASCULAR ACCIDENT [None]
  - BRAIN DEATH [None]
  - DISABILITY [None]
